FAERS Safety Report 5244006-1 (Version None)
Quarter: 2007Q1

REPORT INFORMATION
  Report Type: 
  Country: None (occurrence: None)
  Receive Date: 20070222
  Receipt Date: 20070209
  Transmission Date: 20070707
  Serious: Yes (Other)
  Sender: FDA-Public Use
  Company Number: PHEH2007US01887

PATIENT
  Age: 18 Year
  Sex: Male
  Weight: 84.807 kg

DRUGS (1)
  1. EXJADE [Suspect]
     Indication: IRON OVERLOAD
     Dosage: 1200 MG, QD
     Route: 048
     Dates: start: 20051215

REACTIONS (3)
  - DIZZINESS [None]
  - IVTH NERVE PARALYSIS [None]
  - VISION BLURRED [None]
